FAERS Safety Report 4594660-2 (Version None)
Quarter: 2005Q1

REPORT INFORMATION
  Report Type: 
  Country: None (occurrence: None)
  Receive Date: 20050301
  Receipt Date: 20041202
  Transmission Date: 20050727
  Serious: No
  Sender: FDA-Public Use
  Company Number: US-BRISTOL-MYERS SQUIBB COMPANY-12783049

PATIENT
  Age: 41 Year
  Sex: Female

DRUGS (2)
  1. ERBITUX [Suspect]
     Route: 055
     Dates: start: 20040907, end: 20040907
  2. CHEMOTHERAPY [Suspect]
     Route: 055
     Dates: start: 20040907, end: 20040907

REACTIONS (3)
  - ACCIDENTAL EXPOSURE [None]
  - ALOPECIA [None]
  - DIARRHOEA [None]
